FAERS Safety Report 5902780-2 (Version None)
Quarter: 2008Q3

REPORT INFORMATION
  Report Type: 
  Country: None (occurrence: None)
  Receive Date: 20080929
  Receipt Date: 20080929
  Transmission Date: 20090109
  Serious: Yes (Life-Threatening, Disabling, Other)
  Sender: FDA-Public Use
  Company Number: None

PATIENT
  Age: 48 Year
  Sex: Female
  Weight: 87.9978 kg

DRUGS (1)
  1. OXCARBAZEPINE [Suspect]
     Indication: EPILEPSY
     Dosage: 1 Q 12 HOURS PO
     Route: 048
     Dates: start: 20080801, end: 20080926

REACTIONS (3)
  - ANTICONVULSANT DRUG LEVEL DECREASED [None]
  - CONVULSION [None]
  - PHARMACEUTICAL PRODUCT COMPLAINT [None]
